FAERS Safety Report 7044006-5 (Version None)
Quarter: 2010Q4

REPORT INFORMATION
  Report Type: 
  Country: None (occurrence: None)
  Receive Date: 20101013
  Receipt Date: 20100525
  Transmission Date: 20110411
  Serious: No
  Sender: FDA-Public Use
  Company Number: US-AMGEN-KDL414292

PATIENT
  Sex: Male

DRUGS (1)
  1. VECTIBIX [Suspect]
     Indication: COLORECTAL CANCER

REACTIONS (4)
  - DYSPHAGIA [None]
  - MUCOSAL INFLAMMATION [None]
  - QUALITY OF LIFE DECREASED [None]
  - WEIGHT DECREASED [None]
